FAERS Safety Report 25725125 (Version 1)
Quarter: 2025Q3

REPORT INFORMATION
  Report Type: Spontaneous
  Country: TR (occurrence: TR)
  Receive Date: 20250826
  Receipt Date: 20250826
  Transmission Date: 20251021
  Serious: Yes (Other)
  Sender: ALKEM
  Company Number: TR-ALKEM LABORATORIES LIMITED-GB-ALKEM-2025-07087

PATIENT
  Age: 37 Year
  Sex: Female

DRUGS (5)
  1. PREGABALIN [Suspect]
     Active Substance: PREGABALIN
     Indication: Back pain
     Dosage: 75 MILLIGRAM, BID
     Route: 065
  2. PREGABALIN [Suspect]
     Active Substance: PREGABALIN
     Route: 065
  3. PREGABALIN [Suspect]
     Active Substance: PREGABALIN
     Route: 065
  4. MELOXICAM [Suspect]
     Active Substance: MELOXICAM
     Indication: Lumbar hernia
     Route: 065
  5. ETODOLAC [Suspect]
     Active Substance: ETODOLAC
     Indication: Lumbar hernia
     Route: 065

REACTIONS (13)
  - Drug use disorder [Unknown]
  - Drug dependence [Unknown]
  - Drug abuse [Unknown]
  - Irritability [Unknown]
  - Decreased appetite [Unknown]
  - Psychiatric symptom [Unknown]
  - Social avoidant behaviour [Unknown]
  - Withdrawal syndrome [Unknown]
  - Insomnia [Unknown]
  - Fatigue [Unknown]
  - Depression [Unknown]
  - Prescription drug used without a prescription [Unknown]
  - Drug ineffective [Unknown]
